FAERS Safety Report 4408482-6 (Version None)
Quarter: 2004Q3

REPORT INFORMATION
  Report Type: 
  Country: None (occurrence: None)
  Receive Date: 20040722
  Receipt Date: 20040716
  Transmission Date: 20050211
  Serious: Yes (Hospitalization, Other)
  Sender: FDA-Public Use
  Company Number: KII-2004-0012352

PATIENT
  Age: 74 Year
  Sex: Female

DRUGS (1)
  1. MORPHINE SULFATE [Suspect]
     Indication: PAIN
     Dosage: ORAL
     Route: 048

REACTIONS (7)
  - BLOOD PRESSURE DECREASED [None]
  - DEPRESSED LEVEL OF CONSCIOUSNESS [None]
  - FEELING COLD [None]
  - HYPERHIDROSIS [None]
  - SEPSIS [None]
  - SOMNOLENCE [None]
  - WHITE BLOOD CELL COUNT INCREASED [None]
